FAERS Safety Report 12941329 (Version 2)
Quarter: 2016Q4

REPORT INFORMATION
  Report Type: Spontaneous
  Country: US (occurrence: US)
  Receive Date: 20161114
  Receipt Date: 20161207
  Transmission Date: 20170207
  Serious: No
  Sender: FDA-Public Use
  Company Number: US-ASTRAZENECA-2016SF16310

PATIENT
  Age: 23007 Day
  Sex: Female
  Weight: 73 kg

DRUGS (1)
  1. BYDUREON [Suspect]
     Active Substance: EXENATIDE
     Indication: TYPE 2 DIABETES MELLITUS
     Route: 058
     Dates: start: 20161025, end: 20161025

REACTIONS (4)
  - Swelling face [Unknown]
  - Drug hypersensitivity [Unknown]
  - Rash [Unknown]
  - Pruritus [Unknown]

NARRATIVE: CASE EVENT DATE: 20161025
